FAERS Safety Report 4943618-X (Version None)
Quarter: 2006Q1

REPORT INFORMATION
  Report Type: 
  Country: None (occurrence: None)
  Receive Date: 20060310
  Receipt Date: 20060228
  Transmission Date: 20060701
  Serious: Yes (Other)
  Sender: FDA-Public Use
  Company Number: 2006030519

PATIENT
  Age: 11 Year
  Sex: Female
  Weight: 46.2 kg

DRUGS (1)
  1. SOMATROPIN (SOMATROPIN) [Suspect]
     Indication: TURNER'S SYNDROME
     Dosage: 16 MG SUBCUTANEOUS
     Route: 058
     Dates: start: 20051215, end: 20060130

REACTIONS (1)
  - ANAPHYLACTIC REACTION [None]
